FAERS Safety Report 7642734-1 (Version None)
Quarter: 2011Q3

REPORT INFORMATION
  Report Type: 
  Country: None (occurrence: None)
  Receive Date: 20110728
  Receipt Date: 20110724
  Transmission Date: 20111222
  Serious: No
  Sender: FDA-Public Use
  Company Number: US-PFIZER INC-2011169780

PATIENT

DRUGS (1)
  1. EFFEXOR XR [Suspect]
     Dosage: 225 MG, 1X/DAY

REACTIONS (1)
  - HYPERHIDROSIS [None]
